FAERS Safety Report 13842384 (Version 2)
Quarter: 2017Q3

REPORT INFORMATION
  Report Type: Spontaneous
  Country: FR (occurrence: FR)
  Receive Date: 20170808
  Receipt Date: 20170808
  Transmission Date: 20171127
  Serious: Yes (Other)
  Sender: FDA-Public Use
  Company Number: FR-CONCORDIA PHARMACEUTICALS INC.-GSH201708-004574

PATIENT
  Age: 84 Year
  Sex: Female

DRUGS (9)
  1. DEPAKINE CHRONO [Concomitant]
     Active Substance: VALPROATE SODIUM
     Route: 048
     Dates: start: 20170613, end: 20170628
  2. DEPAKINE CHRONO [Concomitant]
     Active Substance: VALPROATE SODIUM
     Route: 048
     Dates: start: 20170629
  3. CLOBAZAM [Concomitant]
     Active Substance: CLOBAZAM
     Route: 048
     Dates: start: 20170706, end: 20170710
  4. ZONISAMIDE CAPSULE [Suspect]
     Active Substance: ZONISAMIDE
     Indication: EPILEPSY
     Route: 048
     Dates: start: 20170613, end: 20170617
  5. ZONISAMIDE CAPSULE [Suspect]
     Active Substance: ZONISAMIDE
     Route: 048
     Dates: start: 20170618, end: 20170625
  6. ZONISAMIDE CAPSULE [Suspect]
     Active Substance: ZONISAMIDE
     Route: 048
     Dates: start: 20170706
  7. DEPAKINE CHRONO [Concomitant]
     Active Substance: VALPROATE SODIUM
     Indication: EPILEPSY
     Route: 048
     Dates: start: 20170601, end: 20170612
  8. ZONISAMIDE CAPSULE [Suspect]
     Active Substance: ZONISAMIDE
     Route: 048
     Dates: start: 20170626, end: 20170705
  9. CLOBAZAM [Concomitant]
     Active Substance: CLOBAZAM
     Indication: EPILEPSY
     Route: 048
     Dates: start: 20170629, end: 20170705

REACTIONS (4)
  - Encephalopathy [Recovering/Resolving]
  - Altered state of consciousness [Not Recovered/Not Resolved]
  - Disorientation [Recovering/Resolving]
  - Confusional state [Recovering/Resolving]

NARRATIVE: CASE EVENT DATE: 20170619
